FAERS Safety Report 11704347 (Version 1)
Quarter: 2015Q4

REPORT INFORMATION
  Report Type: Spontaneous
  Country: US (occurrence: None)
  Receive Date: 20151105
  Receipt Date: 20151105
  Transmission Date: 20160304
  Serious: No
  Sender: FDA-Public Use
  Company Number: None

PATIENT
  Age: 34 Year
  Sex: Male
  Weight: 104.33 kg

DRUGS (2)
  1. VENLAFAXINE HCL ER 75MG AUROBINDO [Suspect]
     Active Substance: VENLAFAXINE HYDROCHLORIDE
     Indication: BIPOLAR DISORDER
     Route: 048
     Dates: start: 20151031, end: 20151104
  2. LAMOTRIGINE. [Concomitant]
     Active Substance: LAMOTRIGINE

REACTIONS (7)
  - Disturbance in attention [None]
  - Product substitution issue [None]
  - Decreased appetite [None]
  - Depression [None]
  - Drug withdrawal syndrome [None]
  - Vertigo [None]
  - Anxiety [None]

NARRATIVE: CASE EVENT DATE: 20151104
